FAERS Safety Report 16168910 (Version 1)
Quarter: 2019Q2

REPORT INFORMATION
  Report Type: Spontaneous
  Country: TR (occurrence: TR)
  Receive Date: 20190408
  Receipt Date: 20190408
  Transmission Date: 20190711
  Serious: Yes (Hospitalization, Other)
  Sender: FDA-Public Use
  Company Number: TR-MICRO LABS LIMITED-ML2019-00848

PATIENT
  Age: 27 Year
  Sex: Female

DRUGS (1)
  1. MEFENAMIC ACID. [Suspect]
     Active Substance: MEFENAMIC ACID
     Indication: PAIN
     Dosage: TWO TIMES A DAY

REACTIONS (2)
  - Neurotoxicity [Recovered/Resolved]
  - Thrombotic thrombocytopenic purpura [Recovered/Resolved]
